FAERS Safety Report 6179975-9 (Version None)
Quarter: 2009Q2

REPORT INFORMATION
  Report Type: 
  Country: None (occurrence: None)
  Receive Date: 20090505
  Receipt Date: 20090421
  Transmission Date: 20091009
  Serious: Yes (Other)
  Sender: FDA-Public Use
  Company Number: GB-ROCHE-628881

PATIENT
  Sex: Male

DRUGS (3)
  1. CELLCEPT [Suspect]
     Indication: TRANSPLANT
     Route: 065
  2. CELLCEPT [Suspect]
     Route: 065
  3. CELLCEPT [Suspect]
     Route: 065

REACTIONS (2)
  - RECTAL HAEMORRHAGE [None]
  - RECTAL ULCER [None]
